FAERS Safety Report 5023737-2 (Version None)
Quarter: 2006Q2

REPORT INFORMATION
  Report Type: 
  Country: None (occurrence: None)
  Receive Date: 20060606
  Receipt Date: 20060517
  Transmission Date: 20061013
  Serious: Yes (Death)
  Sender: FDA-Public Use
  Company Number: 6022707

PATIENT
  Age: 80 Year
  Sex: Female

DRUGS (10)
  1. CARDENSIEL [Suspect]
     Dosage: SEE IMAGE
     Route: 048
     Dates: start: 20040615, end: 20060312
  2. CARDENSIEL [Suspect]
     Dosage: SEE IMAGE
     Route: 048
     Dates: start: 20060312
  3. ATACAND [Suspect]
     Dosage: SEE IMAGE
     Route: 048
     Dates: start: 20040615, end: 20060312
  4. ATACAND [Suspect]
     Dosage: SEE IMAGE
     Route: 048
     Dates: start: 20060312
  5. TRINIPATCH                          (GLYCERYL TRINITRATE) [Concomitant]
  6. MODOPAR                   (LEVODOPA, BENSERAZIDE HYDROCHLORIDE) [Concomitant]
  7. ISOPHANE INSULIN [Concomitant]
  8. SINEMET [Concomitant]
  9. FERROUS SULFATE TAB [Concomitant]
  10. SPECIAFOLDINE (FOLIC ACID) [Concomitant]

REACTIONS (2)
  - DIABETES MELLITUS INADEQUATE CONTROL [None]
  - RENAL FAILURE ACUTE [None]
